FAERS Safety Report 14298508 (Version 1)
Quarter: 2017Q4

REPORT INFORMATION
  Report Type: Spontaneous
  Country: US (occurrence: US)
  Receive Date: 20171215
  Receipt Date: 20171215
  Transmission Date: 20180321
  Serious: Yes (Hospitalization, Other)
  Sender: FDA-Public Use
  Company Number: None

PATIENT
  Age: 60 Year
  Sex: Female

DRUGS (18)
  1. ROPINIROLE. [Concomitant]
     Active Substance: ROPINIROLE
  2. ASPIRIN. [Concomitant]
     Active Substance: ASPIRIN
  3. BENAZEPRIL [Concomitant]
     Active Substance: BENAZEPRIL HYDROCHLORIDE
  4. OMEPRAZOLE. [Concomitant]
     Active Substance: OMEPRAZOLE
  5. EXTAVIA [Suspect]
     Active Substance: INTERFERON BETA-1B
     Indication: MULTIPLE SCLEROSIS
     Route: 058
     Dates: start: 20160120
  6. XANAX [Concomitant]
     Active Substance: ALPRAZOLAM
  7. KEPPRA [Concomitant]
     Active Substance: LEVETIRACETAM
  8. DEXILANT [Concomitant]
     Active Substance: DEXLANSOPRAZOLE
  9. PROBIOTIC [Concomitant]
     Active Substance: PROBIOTICS NOS
  10. FLONASE [Concomitant]
     Active Substance: FLUTICASONE PROPIONATE
  11. VICODIN [Concomitant]
     Active Substance: ACETAMINOPHEN\HYDROCODONE BITARTRATE
  12. SPIRIVA [Concomitant]
     Active Substance: TIOTROPIUM BROMIDE MONOHYDRATE
  13. SPIRONOLACTONE. [Concomitant]
     Active Substance: SPIRONOLACTONE
  14. GABAPENTIN. [Concomitant]
     Active Substance: GABAPENTIN
  15. NITROSTAT [Concomitant]
     Active Substance: NITROGLYCERIN
  16. BACLOFEN. [Concomitant]
     Active Substance: BACLOFEN
  17. VITAMIN B12 [Concomitant]
     Active Substance: CYANOCOBALAMIN
  18. POT CHLORIDE [Concomitant]
     Active Substance: POTASSIUM CHLORIDE

REACTIONS (3)
  - Cerebrovascular accident [None]
  - Drug dose omission [None]
  - Fall [None]

NARRATIVE: CASE EVENT DATE: 20171128
